FAERS Safety Report 4994329-6 (Version None)
Quarter: 2006Q2

REPORT INFORMATION
  Report Type: 
  Country: None (occurrence: None)
  Receive Date: 20060503
  Receipt Date: 20060424
  Transmission Date: 20061013
  Serious: Yes (Other)
  Sender: FDA-Public Use
  Company Number: 2006-02-1478

PATIENT
  Age: 52 Year
  Sex: Male
  Weight: 65 kg

DRUGS (4)
  1. VIRAFERONPEG (PEG INTERFERON ALFA-2B RECOMBINANT) REPIDEN [Suspect]
     Indication: HEPATITIS C
     Dosage: SEE IMAGE
     Route: 058
     Dates: start: 20051201, end: 20060331
  2. VIRAFERONPEG (PEG INTERFERON ALFA-2B RECOMBINANT) REPIDEN [Suspect]
     Indication: HEPATITIS C
     Dosage: SEE IMAGE
     Route: 058
     Dates: start: 20051201
  3. VIRAFERONPEG (PEG INTERFERON ALFA-2B RECOMBINANT) REPIDEN [Suspect]
     Indication: HEPATITIS C
     Dosage: SEE IMAGE
     Route: 058
     Dates: start: 20060401
  4. REBETOL [Suspect]
     Indication: HEPATITIS C
     Dosage: 1000 MG QD ORAL
     Route: 048
     Dates: start: 20051201

REACTIONS (11)
  - ASTHENIA [None]
  - DRUG INEFFECTIVE [None]
  - DRY SKIN [None]
  - INJECTION SITE ERYTHEMA [None]
  - INJECTION SITE PRURITUS [None]
  - LEUKOPENIA [None]
  - MUSCULOSKELETAL STIFFNESS [None]
  - POST PROCEDURAL COMPLICATION [None]
  - PYREXIA [None]
  - SCIATICA [None]
  - WEIGHT DECREASED [None]
